FAERS Safety Report 14923991 (Version 2)
Quarter: 2018Q3

REPORT INFORMATION
  Report Type: Spontaneous
  Country: US (occurrence: US)
  Receive Date: 20180522
  Receipt Date: 20180823
  Transmission Date: 20181010
  Serious: Yes (Other)
  Sender: FDA-Public Use
  Company Number: US-SILVERGATE PHARMACEUTICALS, INC.-2018SIL00010

PATIENT
  Age: 8 Year
  Sex: Female
  Weight: 28.36 kg

DRUGS (6)
  1. FOLIC ACID. [Concomitant]
     Active Substance: FOLIC ACID
  2. ONDANSETRON [Concomitant]
     Active Substance: ONDANSETRON
  3. XATMEP [Suspect]
     Active Substance: METHOTREXATE
     Indication: SCLERODERMA
  4. LAMICTAL [Concomitant]
     Active Substance: LAMOTRIGINE
  5. XATMEP [Suspect]
     Active Substance: METHOTREXATE
     Indication: MORPHOEA
     Dosage: 7.5 MG, 1X/WEEK
     Route: 048
     Dates: start: 20171108, end: 20171219
  6. POLYETHYLENE GLYCOL [Concomitant]
     Active Substance: POLYETHYLENE GLYCOLS

REACTIONS (4)
  - Seizure [Recovering/Resolving]
  - Skin lesion [Recovering/Resolving]
  - Incontinence [Recovering/Resolving]
  - Drug ineffective for unapproved indication [Recovered/Resolved]

NARRATIVE: CASE EVENT DATE: 2017
